FAERS Safety Report 5745241-6 (Version None)
Quarter: 2008Q2

REPORT INFORMATION
  Report Type: 
  Country: None (occurrence: None)
  Receive Date: 20080521
  Receipt Date: 20080515
  Transmission Date: 20081010
  Serious: Yes (Death)
  Sender: FDA-Public Use
  Company Number: B0521136A

PATIENT
  Age: 95 Year
  Sex: Female
  Weight: 42 kg

DRUGS (8)
  1. ARIXTRA [Suspect]
     Dosage: 2.5MG PER DAY
     Route: 058
     Dates: start: 20060126, end: 20060211
  2. IMOVANE [Concomitant]
     Route: 065
  3. DOLIPRANE [Concomitant]
     Dosage: 1G AS REQUIRED
     Route: 065
  4. ASPIRIN [Concomitant]
     Dosage: 75MG PER DAY
     Route: 065
     Dates: end: 20060122
  5. LOVENOX [Concomitant]
     Dosage: 20MG PER DAY
     Route: 065
     Dates: start: 20060122, end: 20060124
  6. CORDARONE [Concomitant]
     Route: 065
  7. MEDIATENSYL [Concomitant]
     Route: 065
  8. MORPHINE [Concomitant]
     Route: 051

REACTIONS (7)
  - CEREBRAL HAEMATOMA [None]
  - FALL [None]
  - HAEMOGLOBIN DECREASED [None]
  - INTENTIONAL DRUG MISUSE [None]
  - ISCHAEMIC STROKE [None]
  - SUBDURAL HAEMATOMA [None]
  - TRAUMATIC BRAIN INJURY [None]
